FAERS Safety Report 5613723-3 (Version None)
Quarter: 2008Q1

REPORT INFORMATION
  Report Type: 
  Country: None (occurrence: None)
  Receive Date: 20080205
  Receipt Date: 20080122
  Transmission Date: 20080703
  Serious: Yes (Death)
  Sender: FDA-Public Use
  Company Number: US-AMGEN-QUU260453

PATIENT
  Sex: Female
  Weight: 67.2 kg

DRUGS (3)
  1. NEUPOGEN [Suspect]
     Indication: CHEMOTHERAPY
     Route: 058
     Dates: start: 20060629, end: 20061031
  2. CARBOPLATIN [Concomitant]
     Route: 040
     Dates: start: 20060626, end: 20061023
  3. TAXOL [Concomitant]
     Route: 040
     Dates: start: 20060626, end: 20061023

REACTIONS (1)
  - MALIGNANT NEOPLASM PROGRESSION [None]
